FAERS Safety Report 8646050 (Version 5)
Quarter: 2025Q3

REPORT INFORMATION
  Report Type: Spontaneous
  Country: US (occurrence: US)
  Receive Date: 20120702
  Receipt Date: 20250814
  Transmission Date: 20251021
  Serious: Yes (Death, Hospitalization, Other)
  Sender: MERCK SHARP & DOHME LLC
  Company Number: US-MERCK-1206USA04986

PATIENT
  Age: 75 Year
  Sex: Male

DRUGS (2)
  1. CANCIDAS [Suspect]
     Active Substance: CASPOFUNGIN ACETATE
     Indication: Candida infection
     Route: 042
  2. VORICONAZOLE [Concomitant]
     Active Substance: VORICONAZOLE
     Indication: Antifungal prophylaxis
     Dosage: DOSE DESCRIPTION : 200 MG, BID?DAILY DOSE : 400 MILLIGRAM

REACTIONS (2)
  - Septic shock [Fatal]
  - Pneumonia bacterial [Not Recovered/Not Resolved]
